FAERS Safety Report 6354583-5 (Version None)
Quarter: 2009Q3

REPORT INFORMATION
  Report Type: 
  Country: None (occurrence: None)
  Receive Date: 20090914
  Receipt Date: 20090911
  Transmission Date: 20100115
  Serious: Yes (Death)
  Sender: FDA-Public Use
  Company Number: US-JNJFOC-20090903998

PATIENT
  Sex: Male
  Weight: 68.04 kg

DRUGS (2)
  1. DURAGESIC-100 [Suspect]
     Indication: BACK PAIN
     Dosage: 75 UG/HR PLUS  75 UG/HR
     Route: 062
  2. SOMA [Concomitant]
     Indication: MUSCLE SPASMS
     Route: 048

REACTIONS (1)
  - ROAD TRAFFIC ACCIDENT [None]
